FAERS Safety Report 19236093 (Version 12)
Quarter: 2024Q2

REPORT INFORMATION
  Report Type: Spontaneous
  Country: CA (occurrence: CA)
  Receive Date: 20210510
  Receipt Date: 20240606
  Transmission Date: 20240715
  Serious: Yes (Hospitalization, Other)
  Sender: FDA-Public Use
  Company Number: CA-MLMSERVICE-20210421-2849552-1

PATIENT
  Age: 47 Year
  Sex: Female

DRUGS (22)
  1. QUETIAPINE FUMARATE [Interacting]
     Active Substance: QUETIAPINE FUMARATE
     Indication: Major depression
     Dosage: UNK UNK, PRN, 25 TO 50 MG IMMEDIATE-RELEASE 4 TIMES DAILY AS NEEDED
     Route: 065
  2. QUETIAPINE FUMARATE [Interacting]
     Active Substance: QUETIAPINE FUMARATE
     Dosage: 100 MILLIGRAM, QD EXTENDED-RELEASE AT BEDTIME
     Route: 048
  3. GABAPENTIN [Interacting]
     Active Substance: GABAPENTIN
     Indication: Pain
     Dosage: 600 MILLIGRAM, TID
     Route: 048
  4. LORAZEPAM [Interacting]
     Active Substance: LORAZEPAM
     Indication: Withdrawal syndrome
     Dosage: UNK, PRN, 1 TO 2 MG, ORAL, 4 TIMES DAILY AS NEEDED
     Route: 048
  5. DIVALPROEX SODIUM [Suspect]
     Active Substance: DIVALPROEX SODIUM
     Indication: Affective disorder
     Dosage: UNK, QD, 250 MG IN THE MORNING, ENTERIC-COATED TABLETS
     Route: 048
  6. DIVALPROEX SODIUM [Suspect]
     Active Substance: DIVALPROEX SODIUM
     Dosage: UNK UNK, QD, 500 MG AT BEDTIME, ENTERIC-COATED TABLETS
     Route: 048
  7. FLUOXETINE [Interacting]
     Active Substance: FLUOXETINE HYDROCHLORIDE
     Indication: Major depression
     Dosage: 20 MILLIGRAM, QD
     Route: 048
  8. FLUOXETINE [Interacting]
     Active Substance: FLUOXETINE HYDROCHLORIDE
     Dosage: 60 MILLIGRAM, QD
     Route: 048
  9. FLUOXETINE [Interacting]
     Active Substance: FLUOXETINE HYDROCHLORIDE
     Dosage: 80 MILLIGRAM, QD
     Route: 048
  10. FLUOXETINE [Interacting]
     Active Substance: FLUOXETINE HYDROCHLORIDE
     Dosage: 40 MILLIGRAM, QD
     Route: 048
  11. RISPERIDONE [Suspect]
     Active Substance: RISPERIDONE
     Indication: Affective disorder
     Dosage: 1 MILLIGRAM, QD
     Route: 048
  12. DOXEPIN [Interacting]
     Active Substance: DOXEPIN
     Indication: Major depression
     Dosage: 50 MILLIGRAM, QD
     Route: 048
  13. DOXEPIN [Interacting]
     Active Substance: DOXEPIN
     Dosage: 100 MILLIGRAM, QD
     Route: 048
  14. DOXEPIN [Interacting]
     Active Substance: DOXEPIN
     Dosage: 150 MILLIGRAM, QD
     Route: 048
  15. CYCLOBENZAPRINE [Interacting]
     Active Substance: CYCLOBENZAPRINE
     Indication: Pain
     Dosage: 10 MILLIGRAM, BID
     Route: 048
  16. METHADONE HYDROCHLORIDE [Interacting]
     Active Substance: METHADONE HYDROCHLORIDE
     Indication: Drug use disorder
     Dosage: 75 MILLIGRAM, QD
     Route: 048
  17. ESTRADIOL [Concomitant]
     Active Substance: ESTRADIOL
     Indication: Endometriosis
     Dosage: 0.5 MILLIGRAM, QD
     Route: 048
  18. NAPROXEN [Concomitant]
     Active Substance: NAPROXEN
     Indication: Pain
     Dosage: 500 MILLIGRAM, (BID) PRN
     Route: 048
  19. ATENOLOL [Concomitant]
     Active Substance: ATENOLOL
     Indication: Hypertension
     Dosage: 50 MILLIGRAM, QD
     Route: 048
  20. TIOTROPIUM [Concomitant]
     Active Substance: TIOTROPIUM
     Indication: Chronic obstructive pulmonary disease
     Dosage: 5 MICROGRAM, QD INHALATION USE
     Route: 055
  21. FUROSEMIDE [Concomitant]
     Active Substance: FUROSEMIDE
     Indication: Oedema peripheral
     Dosage: 40 MILLIGRAM, PRN, ONCE DAILY
     Route: 048
  22. ALBUTEROL [Concomitant]
     Active Substance: ALBUTEROL
     Indication: Chronic obstructive pulmonary disease
     Dosage: 200 MICROGRAM, PRN, BID
     Route: 055

REACTIONS (5)
  - Respiratory depression [Recovering/Resolving]
  - Depressed level of consciousness [Recovering/Resolving]
  - Drug interaction [Recovering/Resolving]
  - Toxicity to various agents [Recovering/Resolving]
  - Drug interaction [Unknown]
